FAERS Safety Report 7536772-7 (Version None)
Quarter: 2011Q2

REPORT INFORMATION
  Report Type: 
  Country: None (occurrence: None)
  Receive Date: 20110609
  Receipt Date: 20110607
  Transmission Date: 20111010
  Serious: Yes (Hospitalization)
  Sender: FDA-Public Use
  Company Number: US-ROCHE-759669

PATIENT
  Sex: Female

DRUGS (6)
  1. TRASTUZUMAB [Suspect]
     Indication: BREAST CANCER
     Dosage: LOADING DOSE: 4 MG/KG, THEN 2 MG/KG.
     Route: 042
     Dates: start: 20101103, end: 20110126
  2. PEGFILGRASTIM [Concomitant]
     Dates: start: 20101104, end: 20110127
  3. PROPRANOLOL HYDROCHLORIDE [Concomitant]
     Dates: start: 20070101
  4. DOCETAXEL [Suspect]
     Indication: BREAST CANCER
     Dosage: DOSE: 6 AUC
     Route: 042
     Dates: start: 20101103, end: 20110126
  5. CARBOPLATIN [Suspect]
     Indication: BREAST CANCER
     Dosage: DOSE: 6 AUC
     Route: 042
     Dates: start: 20101103, end: 20110126
  6. DEXAMETHASONE [Concomitant]
     Dates: start: 20101102

REACTIONS (1)
  - PULMONARY EMBOLISM [None]
